FAERS Safety Report 8342406-4 (Version None)
Quarter: 2012Q2

REPORT INFORMATION
  Report Type: 
  Country: None (occurrence: None)
  Receive Date: 20120508
  Receipt Date: 20120430
  Transmission Date: 20120825
  Serious: No
  Sender: FDA-Public Use
  Company Number: US-BIOGENIDEC-2012BI009654

PATIENT
  Sex: Female

DRUGS (2)
  1. TYSABRI [Suspect]
     Indication: MULTIPLE SCLEROSIS
     Route: 042
     Dates: start: 20080605, end: 20100208
  2. TYSABRI [Suspect]
     Route: 042
     Dates: start: 20120120, end: 20120316

REACTIONS (10)
  - DRUG INEFFECTIVE [None]
  - ASTHENIA [None]
  - QUALITY OF LIFE DECREASED [None]
  - FATIGUE [None]
  - SPEECH DISORDER [None]
  - HYPOTENSION [None]
  - GENERAL PHYSICAL HEALTH DETERIORATION [None]
  - MALAISE [None]
  - DIZZINESS [None]
  - FEELING ABNORMAL [None]
